FAERS Safety Report 10049452 (Version 1)
Quarter: 2014Q2

REPORT INFORMATION
  Report Type: Spontaneous
  Country: US (occurrence: US)
  Receive Date: 20140401
  Receipt Date: 20140401
  Transmission Date: 20141212
  Serious: No
  Sender: FDA-Public Use
  Company Number: US-009507513-1403USA013770

PATIENT
  Sex: Female

DRUGS (3)
  1. ASMANEX TWISTHALER [Suspect]
     Indication: HYPERSENSITIVITY
     Dosage: 1 DF, QD, ROUTE -ORAL INHALATION
     Dates: start: 201207
  2. ASMANEX TWISTHALER [Suspect]
     Indication: ASTHMA
  3. COMBIVENT RESPIMAT [Concomitant]
     Dosage: UNK

REACTIONS (4)
  - Drug ineffective [Unknown]
  - Drug dose omission [Unknown]
  - Inappropriate schedule of drug administration [Unknown]
  - Product quality issue [Unknown]
